FAERS Safety Report 14334566 (Version 1)
Quarter: 2017Q4

REPORT INFORMATION
  Report Type: Spontaneous
  Country: IR (occurrence: IR)
  Receive Date: 20171228
  Receipt Date: 20171228
  Transmission Date: 20180321
  Serious: Yes (Death, Other)
  Sender: FDA-Public Use
  Company Number: IR-BAUSCH-BL-2017-034968

PATIENT
  Age: 23 Year
  Sex: Male

DRUGS (1)
  1. OPIUM. [Suspect]
     Active Substance: OPIUM
     Indication: PRODUCT USED FOR UNKNOWN INDICATION
     Route: 065

REACTIONS (3)
  - Respiratory distress [Unknown]
  - Apnoea [Unknown]
  - Toxicity to various agents [Fatal]
